FAERS Safety Report 20327106 (Version 5)
Quarter: 2023Q4

REPORT INFORMATION
  Report Type: Spontaneous
  Country: US (occurrence: US)
  Receive Date: 20220112
  Receipt Date: 20231211
  Transmission Date: 20240110
  Serious: No
  Sender: FDA-Public Use
  Company Number: US-PFIZER INC-202101792895

PATIENT
  Age: 60 Year
  Sex: Female

DRUGS (2)
  1. IBRANCE [Suspect]
     Active Substance: PALBOCICLIB
     Indication: Breast cancer stage IV
     Dosage: 125 MG, CYCLIC (1 TABLET BY MOUTH ONCE A DAY FOR 21 DAYS OUT OF EVERY 28 DAYS)
     Route: 048
     Dates: start: 20211105
  2. IBRANCE [Suspect]
     Active Substance: PALBOCICLIB
     Dosage: 125 MG, CYCLIC (1 TABLET BY MOUTH ONCE A DAY FOR 21 DAYS OUT OF EVERY 28 DAYS)
     Route: 048
     Dates: start: 20211125

REACTIONS (3)
  - Fatigue [Unknown]
  - White blood cell count decreased [Unknown]
  - Product dose omission issue [Unknown]
